FAERS Safety Report 7637811-5 (Version None)
Quarter: 2011Q3

REPORT INFORMATION
  Report Type: 
  Country: None (occurrence: None)
  Receive Date: 20110718
  Receipt Date: 20110701
  Transmission Date: 20111222
  Serious: No
  Sender: FDA-Public Use
  Company Number: US-145216

PATIENT
  Age: 8 Year

DRUGS (1)
  1. WINRHO [Suspect]

REACTIONS (1)
  - INTRAVASCULAR HAEMOLYSIS [None]
